FAERS Safety Report 15920994 (Version 1)
Quarter: 2019Q1

REPORT INFORMATION
  Report Type: Spontaneous
  Country: CN (occurrence: CN)
  Receive Date: 20190205
  Receipt Date: 20190205
  Transmission Date: 20190417
  Serious: Yes (Life-Threatening, Hospitalization)
  Sender: FDA-Public Use
  Company Number: CN-ELI_LILLY_AND_COMPANY-CN201902000211

PATIENT
  Sex: Male
  Weight: 52 kg

DRUGS (6)
  1. SODIUM CHLORIDE. [Suspect]
     Active Substance: SODIUM CHLORIDE
     Dosage: 250 ML, DAILY
     Route: 042
     Dates: start: 20181113, end: 20181116
  2. SODIUM CHLORIDE. [Suspect]
     Active Substance: SODIUM CHLORIDE
     Dosage: 228 ML, DAILY
     Route: 042
     Dates: start: 20181113, end: 20181113
  3. NUO XIN [Suspect]
     Active Substance: CISPLATIN
     Indication: SQUAMOUS CELL CARCINOMA OF LUNG
     Dosage: 30 MG, DAILY
     Route: 042
     Dates: start: 20181113, end: 20181116
  4. ENDOSTATIN [Suspect]
     Active Substance: ENDOSTATIN
     Indication: SQUAMOUS CELL CARCINOMA OF LUNG
     Dosage: 210 MG, DAILY
     Route: 042
     Dates: start: 20181113, end: 20181113
  5. GEMZAR [Suspect]
     Active Substance: GEMCITABINE HYDROCHLORIDE
     Indication: SQUAMOUS CELL CARCINOMA OF LUNG
     Dosage: 1.6 MG, SINGLE DOSAGE
     Route: 042
     Dates: start: 20181113, end: 20181113
  6. SODIUM CHLORIDE. [Suspect]
     Active Substance: SODIUM CHLORIDE
     Indication: PRODUCT USED FOR UNKNOWN INDICATION
     Dosage: 100 ML, DAILY
     Route: 042
     Dates: start: 20181112, end: 20181112

REACTIONS (1)
  - Thrombocytopenia [Recovering/Resolving]
